FAERS Safety Report 9444935 (Version 3)
Quarter: 2013Q3

REPORT INFORMATION
  Report Type: Spontaneous
  Country: JP (occurrence: JP)
  Receive Date: 20130807
  Receipt Date: 20130822
  Transmission Date: 20140515
  Serious: Yes (Other)
  Sender: FDA-Public Use
  Company Number: JP-UCBSA-094056

PATIENT
  Age: 37 Year
  Sex: Female

DRUGS (3)
  1. E KEPPRA [Suspect]
     Route: 048
  2. ALDOMET [Concomitant]
     Dosage: 1000 MG DAILY
     Route: 048
  3. SODIUM VALPROATE [Concomitant]

REACTIONS (3)
  - Caesarean section [Unknown]
  - Exposure during pregnancy [Recovered/Resolved]
  - Breast feeding [Unknown]
